FAERS Safety Report 9404623 (Version 2)
Quarter: 2013Q3

REPORT INFORMATION
  Report Type: Spontaneous
  Country: DK (occurrence: DE)
  Receive Date: 20130717
  Receipt Date: 20130724
  Transmission Date: 20140515
  Serious: No
  Sender: FDA-Public Use
  Company Number: DE-FRI-1000046639

PATIENT
  Age: 42 Year
  Sex: Male
  Weight: 90 kg

DRUGS (1)
  1. ESCITALOPRAM ORAL SOLUTION [Suspect]
     Indication: DEPRESSION
     Dosage: 5 MG
     Route: 048

REACTIONS (1)
  - Drug withdrawal syndrome [Recovered/Resolved]
